FAERS Safety Report 6911069-4 (Version None)
Quarter: 2010Q3

REPORT INFORMATION
  Report Type: 
  Country: None (occurrence: None)
  Receive Date: 20100806
  Receipt Date: 20100728
  Transmission Date: 20110219
  Serious: Yes (Other)
  Sender: FDA-Public Use
  Company Number: AR-B.I. PHARMACEUTICALS,INC./RIDGEFIELD-2010-BP-08612BP

PATIENT
  Age: 31 Year
  Sex: Female

DRUGS (9)
  1. VIRAMUNE [Suspect]
     Indication: ANTIVIRAL TREATMENT
     Route: 048
     Dates: end: 20040427
  2. COMBIVIR [Concomitant]
     Indication: ANTIVIRAL TREATMENT
     Route: 048
     Dates: end: 20040427
  3. COMBIVIR [Concomitant]
     Route: 048
     Dates: start: 20040813
  4. EPIVIR [Concomitant]
     Indication: ANTIVIRAL TREATMENT
     Route: 048
     Dates: end: 20040427
  5. VIRACEPT [Concomitant]
     Indication: ANTIVIRAL TREATMENT
     Route: 048
     Dates: start: 20040813
  6. COCAINE [Concomitant]
  7. FERROUS SULFATE [Concomitant]
  8. FOLIC ACID [Concomitant]
  9. MARIJUANA [Concomitant]

REACTIONS (2)
  - DRUG EXPOSURE DURING PREGNANCY [None]
  - STILLBIRTH [None]
